FAERS Safety Report 8999322 (Version 3)
Quarter: 2013Q4

REPORT INFORMATION
  Report Type: Report from Study
  Country: FR (occurrence: FR)
  Receive Date: 20130103
  Receipt Date: 20131217
  Transmission Date: 20140711
  Serious: Yes (Other)
  Sender: FDA-Public Use
  Company Number: FR-CELGENEUS-056-21880-12122817

PATIENT
  Age: 65 Year
  Sex: Female

DRUGS (8)
  1. REVLIMID [Suspect]
     Indication: PLASMA CELL MYELOMA
     Route: 048
     Dates: start: 20120521
  2. BORTEZOMIB [Suspect]
     Indication: PLASMA CELL MYELOMA
     Route: 065
     Dates: start: 20120521
  3. DEXAMETHASONE [Suspect]
     Indication: PLASMA CELL MYELOMA
     Route: 065
     Dates: start: 20120521
  4. ENDOXAN [Concomitant]
  5. INNOHEP [Concomitant]
     Indication: THROMBOSIS PROPHYLAXIS
     Route: 058
     Dates: start: 20120521
  6. VALACYCLOVIR [Concomitant]
     Indication: ANTIVIRAL PROPHYLAXIS
     Route: 048
     Dates: start: 20120521
  7. AMOXICILLIN [Concomitant]
     Indication: INFECTION PROPHYLAXIS
     Route: 048
     Dates: start: 20120521
  8. INEXIUM [Concomitant]
     Indication: PROPHYLAXIS
     Route: 048
     Dates: start: 20120521

REACTIONS (1)
  - Adenocarcinoma of colon [Recovered/Resolved]
